FAERS Safety Report 23798953 (Version 1)
Quarter: 2024Q2

REPORT INFORMATION
  Report Type: Report from Study
  Country: US (occurrence: US)
  Receive Date: 20240430
  Receipt Date: 20240430
  Transmission Date: 20240716
  Serious: Yes (Other)
  Sender: FDA-Public Use
  Company Number: US-JNJFOC-20240468976

PATIENT
  Age: 61 Year
  Sex: Female

DRUGS (2)
  1. SPRAVATO [Suspect]
     Active Substance: ESKETAMINE
     Indication: Depression
     Dosage: ^^56 MG, 2 TOTAL DOSES^^
     Dates: start: 20240124, end: 20240129
  2. SPRAVATO [Suspect]
     Active Substance: ESKETAMINE
     Dosage: ^^84 MG, 2 TOTAL DOSES^^
     Dates: start: 20240131, end: 20240219

REACTIONS (1)
  - Substance abuse [Unknown]

NARRATIVE: CASE EVENT DATE: 20240101
